FAERS Safety Report 15582214 (Version 2)
Quarter: 2019Q1

REPORT INFORMATION
  Report Type: Spontaneous
  Country: US (occurrence: US)
  Receive Date: 20181102
  Receipt Date: 20190207
  Transmission Date: 20190417
  Serious: No
  Sender: FDA-Public Use
  Company Number: US-RADIUS HEALTH INC.-2018US002256

PATIENT
  Sex: Female
  Weight: 40.36 kg

DRUGS (3)
  1. TYMLOS [Suspect]
     Active Substance: ABALOPARATIDE
     Dosage: 80 MCG,QD X 2 DAYS; THEN OFF X 1 DAY.
     Route: 058
  2. TYMLOS [Suspect]
     Active Substance: ABALOPARATIDE
     Dosage: 80MCG, QOD
     Route: 058
     Dates: start: 20180920
  3. TYMLOS [Suspect]
     Active Substance: ABALOPARATIDE
     Indication: OSTEOPOROSIS POSTMENOPAUSAL
     Dosage: 80 MCG, QD
     Route: 058
     Dates: start: 201808

REACTIONS (10)
  - Injection site erythema [Unknown]
  - Heart rate increased [Not Recovered/Not Resolved]
  - Off label use [Recovered/Resolved]
  - Palpitations [Not Recovered/Not Resolved]
  - Nausea [Unknown]
  - Rash generalised [Not Recovered/Not Resolved]
  - Asthenia [Not Recovered/Not Resolved]
  - Headache [Not Recovered/Not Resolved]
  - Off label use [Not Recovered/Not Resolved]
  - Injection site pain [Unknown]
